FAERS Safety Report 21334538 (Version 7)
Quarter: 2023Q1

REPORT INFORMATION
  Report Type: Spontaneous
  Country: JP (occurrence: JP)
  Receive Date: 20220914
  Receipt Date: 20230215
  Transmission Date: 20230417
  Serious: Yes (Hospitalization)
  Sender: FDA-Public Use
  Company Number: JP-UCBJ-CD202209127UCBPHAPROD

PATIENT
  Age: 35 Year
  Sex: Female
  Weight: 42 kg

DRUGS (3)
  1. CIMZIA [Suspect]
     Active Substance: CERTOLIZUMAB PEGOL
     Indication: Rheumatoid arthritis
     Dosage: 200 MILLIGRAM, EV 2 WEEKS(QOW)
     Route: 058
     Dates: start: 20170517, end: 20220325
  2. PREDNISOLONE [Concomitant]
     Active Substance: PREDNISOLONE
     Indication: Product used for unknown indication
     Dosage: 30 MILLIGRAM PER DAY
     Dates: start: 20220509
  3. PREDNISOLONE [Concomitant]
     Active Substance: PREDNISOLONE
     Dosage: 20 MILLIGRAM PER DAY
     Dates: start: 20220928

REACTIONS (2)
  - IgA nephropathy [Recovering/Resolving]
  - Tonsillectomy [Unknown]

NARRATIVE: CASE EVENT DATE: 20220328
